FAERS Safety Report 20559881 (Version 1)
Quarter: 2022Q1

REPORT INFORMATION
  Report Type: Spontaneous
  Country: US (occurrence: None)
  Receive Date: 20220305
  Receipt Date: 20220305
  Transmission Date: 20220423
  Serious: Yes (Hospitalization)
  Sender: FDA-Public Use
  Company Number: None

PATIENT
  Age: 83 Year
  Sex: Female
  Weight: 61.9 kg

DRUGS (1)
  1. PEMBROLIZUMAB [Suspect]
     Active Substance: PEMBROLIZUMAB
     Dates: end: 20220214

REACTIONS (10)
  - Dyspnoea [None]
  - Productive cough [None]
  - Nasal congestion [None]
  - Chills [None]
  - Oxygen saturation decreased [None]
  - Pleural effusion [None]
  - Pneumonia [None]
  - Cardiac failure congestive [None]
  - Oedema peripheral [None]
  - Pneumonitis [None]

NARRATIVE: CASE EVENT DATE: 20220303
